FAERS Safety Report 17535669 (Version 1)
Quarter: 2020Q1

REPORT INFORMATION
  Report Type: Spontaneous
  Country: SG (occurrence: SG)
  Receive Date: 20200313
  Receipt Date: 20200313
  Transmission Date: 20200409
  Serious: Yes (Other)
  Sender: FDA-Public Use
  Company Number: SG-ROCHE-2564512

PATIENT
  Sex: Male
  Weight: 47.1 kg

DRUGS (31)
  1. RITUXIMAB. [Suspect]
     Active Substance: RITUXIMAB
     Dosage: RCHOP CYCLE 4
     Route: 065
     Dates: start: 20190326
  2. CYCLOPHOSPHAMIDE. [Suspect]
     Active Substance: CYCLOPHOSPHAMIDE
     Dosage: RCHOP CYCLE 2
     Route: 065
     Dates: start: 20190211
  3. DOXORUBICIN [Suspect]
     Active Substance: DOXORUBICIN
     Dosage: RCHOP CYCLE 2
     Route: 065
     Dates: start: 20190211
  4. DOXORUBICIN [Suspect]
     Active Substance: DOXORUBICIN
     Indication: DIFFUSE LARGE B-CELL LYMPHOMA
     Dosage: RCHOP CYCLE 1
     Route: 065
     Dates: start: 20190121
  5. DOXORUBICIN [Suspect]
     Active Substance: DOXORUBICIN
     Dosage: RCHOP CYCLE 5
     Route: 065
     Dates: start: 20190418
  6. DOXORUBICIN [Suspect]
     Active Substance: DOXORUBICIN
     Dosage: RCHOP CYCLE 6
     Route: 065
     Dates: start: 20190610
  7. RITUXIMAB. [Suspect]
     Active Substance: RITUXIMAB
     Indication: DIFFUSE LARGE B-CELL LYMPHOMA
     Dosage: RCHOP CYCLE 1
     Route: 065
     Dates: start: 20190121
  8. RITUXIMAB. [Suspect]
     Active Substance: RITUXIMAB
     Dosage: RCHOP CYCLE 2
     Route: 065
     Dates: start: 20190211
  9. VINCRISTINE [Suspect]
     Active Substance: VINCRISTINE
     Dosage: RCHOP CYCLE 5
     Route: 065
     Dates: start: 20190418
  10. VINCRISTINE [Suspect]
     Active Substance: VINCRISTINE
     Dosage: RCHOP CYCLE 6
     Route: 065
     Dates: start: 20190610
  11. METHOTREXATE. [Suspect]
     Active Substance: METHOTREXATE
     Indication: DIFFUSE LARGE B-CELL LYMPHOMA
     Route: 037
     Dates: start: 20190212
  12. RITUXIMAB. [Suspect]
     Active Substance: RITUXIMAB
     Route: 065
     Dates: start: 20190813
  13. CYCLOPHOSPHAMIDE. [Suspect]
     Active Substance: CYCLOPHOSPHAMIDE
     Dosage: RCHOP CYCLE 5
     Route: 065
     Dates: start: 20190418
  14. VINCRISTINE [Suspect]
     Active Substance: VINCRISTINE
     Indication: DIFFUSE LARGE B-CELL LYMPHOMA
     Dosage: RCHOP CYCLE 1
     Route: 065
     Dates: start: 20190121
  15. RITUXIMAB. [Suspect]
     Active Substance: RITUXIMAB
     Dosage: RCHOP CYCLE 5
     Route: 065
     Dates: start: 20190418
  16. PREDNISOLONE. [Suspect]
     Active Substance: PREDNISOLONE
     Dosage: RCHOP CYCLE 6
     Route: 065
     Dates: start: 20190610
  17. RITUXIMAB. [Suspect]
     Active Substance: RITUXIMAB
     Dosage: RCHOP CYCLE 6
     Route: 065
     Dates: start: 20190610
  18. CYCLOPHOSPHAMIDE. [Suspect]
     Active Substance: CYCLOPHOSPHAMIDE
     Dosage: RCHOP CYCLE 6
     Route: 065
     Dates: start: 20190610
  19. VINCRISTINE [Suspect]
     Active Substance: VINCRISTINE
     Dosage: RCHOP CYCLE 2
     Route: 065
     Dates: start: 20190211
  20. PREDNISOLONE. [Suspect]
     Active Substance: PREDNISOLONE
     Indication: DIFFUSE LARGE B-CELL LYMPHOMA
     Dosage: RCHOP CYCLE 1
     Route: 065
     Dates: start: 20190121
  21. PREDNISOLONE. [Suspect]
     Active Substance: PREDNISOLONE
     Dosage: RCHOP CYCLE 4
     Route: 065
     Dates: start: 20190326
  22. PREDNISOLONE. [Suspect]
     Active Substance: PREDNISOLONE
     Dosage: RCHOP CYCLE 5
     Route: 065
     Dates: start: 20190418
  23. GEMCITABINE. [Suspect]
     Active Substance: GEMCITABINE
     Indication: DIFFUSE LARGE B-CELL LYMPHOMA
     Route: 065
     Dates: start: 20190813
  24. METHOTREXATE. [Suspect]
     Active Substance: METHOTREXATE
     Route: 037
     Dates: start: 20190326
  25. CYCLOPHOSPHAMIDE. [Suspect]
     Active Substance: CYCLOPHOSPHAMIDE
     Indication: DIFFUSE LARGE B-CELL LYMPHOMA
     Dosage: RCHOP CYCLE 1
     Route: 065
     Dates: start: 20190121
  26. OXALIPLATIN. [Suspect]
     Active Substance: OXALIPLATIN
     Indication: DIFFUSE LARGE B-CELL LYMPHOMA
     Route: 065
     Dates: start: 20190813
  27. CYCLOPHOSPHAMIDE. [Suspect]
     Active Substance: CYCLOPHOSPHAMIDE
     Dosage: RCHOP CYCLE 4
     Route: 065
     Dates: start: 20190326
  28. DOXORUBICIN [Suspect]
     Active Substance: DOXORUBICIN
     Dosage: RCHOP CYCLE 4
     Route: 065
     Dates: start: 20190326
  29. VINCRISTINE [Suspect]
     Active Substance: VINCRISTINE
     Dosage: RCHOP CYCLE 4
     Route: 065
     Dates: start: 20190326
  30. PREDNISOLONE. [Suspect]
     Active Substance: PREDNISOLONE
     Dosage: RCHOP CYCLE 2
     Route: 065
     Dates: start: 20190211
  31. METHOTREXATE. [Suspect]
     Active Substance: METHOTREXATE
     Route: 037
     Dates: start: 20190418

REACTIONS (11)
  - Pleural effusion [Unknown]
  - Diffuse large B-cell lymphoma refractory [Unknown]
  - Off label use [Unknown]
  - Haemoglobin decreased [Unknown]
  - Diffuse large B-cell lymphoma recurrent [Unknown]
  - Superior vena cava occlusion [Unknown]
  - Blood lactate dehydrogenase increased [Unknown]
  - Product use issue [Unknown]
  - Hepatitis B [Unknown]
  - Colon neoplasm [Unknown]
  - Pericardial effusion [Unknown]
